FAERS Safety Report 7976994 (Version 5)
Quarter: 2013Q4

REPORT INFORMATION
  Report Type: Spontaneous
  Country: US (occurrence: US)
  Receive Date: 20110607
  Receipt Date: 20131204
  Transmission Date: 20140711
  Serious: Yes (Hospitalization, Other)
  Sender: FDA-Public Use
  Company Number: US-ASTRAZENECA-2011SE32276

PATIENT
  Age: 64 Year
  Sex: Female

DRUGS (27)
  1. NEXIUM [Suspect]
     Indication: GASTROOESOPHAGEAL REFLUX DISEASE
     Route: 048
     Dates: start: 20020304, end: 20110403
  2. NEXIUM [Suspect]
     Indication: GASTROOESOPHAGEAL REFLUX DISEASE
     Route: 048
     Dates: start: 20020304, end: 20110401
  3. NEXIUM [Suspect]
     Indication: GASTROOESOPHAGEAL REFLUX DISEASE
     Dosage: TWO TIMES A DAY
     Route: 048
     Dates: start: 2003
  4. NEXIUM [Suspect]
     Indication: GASTROOESOPHAGEAL REFLUX DISEASE
     Route: 048
     Dates: start: 20011128
  5. CELEBREX [Suspect]
     Route: 065
  6. CELEBREX [Suspect]
     Route: 065
     Dates: start: 20001010
  7. HYDROCODONE [Concomitant]
     Indication: PAIN
  8. PROIGIL [Concomitant]
     Indication: SLEEP APNOEA SYNDROME
  9. PROIGIL [Concomitant]
     Indication: SLEEP APNOEA SYNDROME
     Dates: start: 20060216
  10. GLYBURIDE [Concomitant]
     Indication: DIABETES MELLITUS
  11. METFORMEN [Concomitant]
     Indication: DIABETES MELLITUS
  12. LIPITOR [Concomitant]
     Indication: BLOOD CHOLESTEROL
  13. VITAMIN D [Concomitant]
  14. VITAMIN C [Concomitant]
  15. BC HEADACHE POWDER [Concomitant]
  16. SEROQUEL [Concomitant]
     Dates: start: 20001024
  17. PREVACID [Concomitant]
     Dates: start: 20010102
  18. ALPRAZOLAM/ XANAX [Concomitant]
     Dates: start: 20010517
  19. PREDNISONE [Concomitant]
     Dates: start: 20060322
  20. GEODON [Concomitant]
     Dates: start: 20060403
  21. LYRICA [Concomitant]
     Dates: start: 20061004
  22. CYMBALTA [Concomitant]
     Dates: start: 20070802
  23. SINGULAIR [Concomitant]
     Dates: start: 20071112
  24. GLIMEPIRIDE [Concomitant]
     Dates: start: 20110208
  25. LORCET [Concomitant]
     Dosage: 500 MG/ 5 MG
     Dates: start: 20110208
  26. ULTRAM [Concomitant]
     Dates: start: 20010205
  27. SOMA/ CARISOPRODOL [Concomitant]
     Dates: start: 20001213

REACTIONS (22)
  - Spinal fracture [Unknown]
  - Spinal compression fracture [Unknown]
  - Bone density decreased [Unknown]
  - Lumbar vertebral fracture [Unknown]
  - Rib fracture [Unknown]
  - Skull fracture [Unknown]
  - Influenza [Unknown]
  - Cerebrovascular accident [Unknown]
  - Lumbar spinal stenosis [Unknown]
  - Osteoporosis [Unknown]
  - Arthritis [Unknown]
  - Spinal osteoarthritis [Unknown]
  - Osteoarthritis [Unknown]
  - Vertebral foraminal stenosis [Unknown]
  - Pain [Unknown]
  - Anxiety [Unknown]
  - Rheumatoid arthritis [Unknown]
  - Hiatus hernia [Unknown]
  - Fall [Unknown]
  - Arthralgia [Unknown]
  - Vitamin B12 deficiency [Unknown]
  - Hepatic steatosis [Unknown]
